FAERS Safety Report 23193415 (Version 1)
Quarter: 2023Q4

REPORT INFORMATION
  Report Type: Spontaneous
  Country: KW (occurrence: KW)
  Receive Date: 20231116
  Receipt Date: 20231116
  Transmission Date: 20240110
  Serious: Yes (Hospitalization)
  Sender: FDA-Public Use
  Company Number: KW-BoehringerIngelheim-2023-BI-273087

PATIENT
  Age: 42 Year
  Sex: Male

DRUGS (1)
  1. SYNJARDY [Suspect]
     Active Substance: EMPAGLIFLOZIN\METFORMIN HYDROCHLORIDE
     Indication: Type 2 diabetes mellitus
     Dosage: 12.5/1000
     Route: 048

REACTIONS (1)
  - Alkalosis [Recovered/Resolved]

NARRATIVE: CASE EVENT DATE: 20231108
